FAERS Safety Report 8435693-5 (Version None)
Quarter: 2012Q2

REPORT INFORMATION
  Report Type: 
  Country: None (occurrence: None)
  Receive Date: 20120614
  Receipt Date: 20120611
  Transmission Date: 20120825
  Serious: Yes (Death, Hospitalization)
  Sender: FDA-Public Use
  Company Number: US-TEVA-342794USA

PATIENT
  Age: 67 Year
  Sex: Female

DRUGS (2)
  1. PROPOFOL [Suspect]
     Indication: CONVULSION
     Route: 065
  2. MIDAZOLAM [Suspect]
     Indication: CONVULSION
     Route: 065

REACTIONS (2)
  - DEATH [None]
  - HYPOTHERMIA [None]
